FAERS Safety Report 4293192-9 (Version None)
Quarter: 2004Q1

REPORT INFORMATION
  Report Type: 
  Country: None (occurrence: None)
  Receive Date: 20040210
  Receipt Date: 20040202
  Transmission Date: 20041129
  Serious: Yes (Death)
  Sender: FDA-Public Use
  Company Number: US-JNJFOC-20040200545

PATIENT
  Sex: Female

DRUGS (1)
  1. DURAGESIC [Suspect]
     Indication: PAIN
     Dosage: 300 UG/HR, 1 IN 48 HOUR, TRANSDERMAL
     Route: 062
     Dates: end: 20031031

REACTIONS (2)
  - SEPSIS [None]
  - WOUND [None]
